FAERS Safety Report 6103194-5 (Version None)
Quarter: 2009Q1

REPORT INFORMATION
  Report Type: 
  Country: None (occurrence: None)
  Receive Date: 20090302
  Receipt Date: 20090212
  Transmission Date: 20090719
  Serious: Yes (Death)
  Sender: FDA-Public Use
  Company Number: 1000004869

PATIENT
  Age: 85 Year
  Sex: Male

DRUGS (4)
  1. LEVOTHROID [Suspect]
     Dosage: ORAL
     Route: 048
  2. PAROXETINE HCL [Suspect]
     Dosage: ORAL
     Route: 048
  3. TERAZOSIN HCL [Suspect]
     Dosage: ORAL
     Route: 048
  4. UNKNOWN DRUG [Suspect]
     Dosage: ORAL
     Route: 048

REACTIONS (4)
  - CARDIAC ARREST [None]
  - COMPLETED SUICIDE [None]
  - MULTIPLE DRUG OVERDOSE INTENTIONAL [None]
  - RESPIRATORY ARREST [None]
